FAERS Safety Report 19133952 (Version 1)
Quarter: 2021Q2

REPORT INFORMATION
  Report Type: Spontaneous
  Country: JP (occurrence: JP)
  Receive Date: 20210414
  Receipt Date: 20210414
  Transmission Date: 20210717
  Serious: Yes (Other)
  Sender: FDA-Public Use
  Company Number: JP-BRISTOL-MYERS SQUIBB COMPANY-BMS-2021-034739

PATIENT
  Age: 68 Year
  Sex: Male

DRUGS (4)
  1. PREDNISOLONE. [Suspect]
     Active Substance: PREDNISOLONE
     Indication: PROPHYLAXIS
     Dosage: 30 MILLIGRAM,  STARTED 2 DAYS AFTER ESD, TAPERED DOWN BY 5 MG EVERY 2 WEEKS
     Route: 048
  2. KENACORT?A [Suspect]
     Active Substance: TRIAMCINOLONE ACETONIDE
     Dosage: 100 MILLIGRAM, 7 TIMES A WEEK
     Route: 061
  3. KENACORT?A [Suspect]
     Active Substance: TRIAMCINOLONE ACETONIDE
     Indication: PROPHYLAXIS
     Dosage: 100 MILLIGRAM, IMMEDIATELY AFTER ESD
     Route: 061
  4. PREDNISOLONE. [Suspect]
     Active Substance: PREDNISOLONE
     Dosage: 5 MILLIGRAM, Q2WK
     Route: 048

REACTIONS (1)
  - Bronchopulmonary aspergillosis [Recovered/Resolved]
